FAERS Safety Report 4358131-0 (Version None)
Quarter: 2004Q2

REPORT INFORMATION
  Report Type: 
  Country: None (occurrence: None)
  Receive Date: 20040513
  Receipt Date: 20040513
  Transmission Date: 20050107
  Serious: Yes (Hospitalization, Other)
  Sender: FDA-Public Use
  Company Number: None

PATIENT
  Age: 28 Year
  Sex: Female
  Weight: 48.9885 kg

DRUGS (13)
  1. VALTREX [Suspect]
     Indication: STRESS SYMPTOMS
     Dosage: 3-LABELED 2 DAY-5 DAYS ORAL, 1 DAY REMAIN ORAL
     Route: 048
     Dates: start: 20040424, end: 20040512
  2. VALTREX [Suspect]
     Indication: VIRAL INFECTION
     Dosage: 3-LABELED 2 DAY-5 DAYS ORAL, 1 DAY REMAIN ORAL
     Route: 048
     Dates: start: 20040424, end: 20040512
  3. BENEDRYL [Concomitant]
  4. AVENO [Concomitant]
  5. AQUAPHOR [Concomitant]
  6. NEOSPORIN [Concomitant]
  7. SILVER SULFADDIAZINE CREAM [Concomitant]
  8. TYLENOL [Concomitant]
  9. TETNUS SHOT [Concomitant]
  10. ALOE VERA [Concomitant]
  11. ALEVE [Concomitant]
  12. NEUTROGENA 45 SUNBLOCK [Concomitant]
  13. OIL OF OLAY 30 FACE UV PROTECTOR [Concomitant]

REACTIONS (11)
  - BLISTER [None]
  - BURNS FIRST DEGREE [None]
  - BURNS SECOND DEGREE [None]
  - BURNS THIRD DEGREE [None]
  - HYPERSENSITIVITY [None]
  - IMPAIRED WORK ABILITY [None]
  - PAIN [None]
  - PHOTOSENSITIVITY REACTION [None]
  - RASH [None]
  - SKIN DISCOLOURATION [None]
  - SKIN ULCER [None]
